FAERS Safety Report 20422794 (Version 3)
Quarter: 2022Q1

REPORT INFORMATION
  Report Type: Spontaneous
  Country: US (occurrence: None)
  Receive Date: 20220203
  Receipt Date: 20220316
  Transmission Date: 20220423
  Serious: No
  Sender: FDA-Public Use
  Company Number: 2022A021966

PATIENT
  Age: 66 Year
  Sex: Male
  Weight: 104.3 kg

DRUGS (2)
  1. BUDESONIDE\FORMOTEROL\GLYCOPYRRONIUM [Suspect]
     Active Substance: BUDESONIDE\FORMOTEROL\GLYCOPYRRONIUM
     Indication: Asthma
     Dosage: 2 PUFFS TWICE DAILY
     Route: 055
     Dates: start: 2021
  2. BUDESONIDE\FORMOTEROL\GLYCOPYRRONIUM [Suspect]
     Active Substance: BUDESONIDE\FORMOTEROL\GLYCOPYRRONIUM
     Indication: Dyspnoea
     Dosage: 2 PUFFS TWICE DAILY
     Route: 055
     Dates: start: 2021

REACTIONS (6)
  - COVID-19 [Unknown]
  - Product use issue [Unknown]
  - Wrong technique in product usage process [Unknown]
  - Poor quality device used [Unknown]
  - Drug dose omission by device [Unknown]
  - Device issue [Unknown]

NARRATIVE: CASE EVENT DATE: 20210101
